FAERS Safety Report 10330730 (Version 1)
Quarter: 2014Q3

REPORT INFORMATION
  Report Type: Spontaneous
  Country: US (occurrence: None)
  Receive Date: 20140718
  Receipt Date: 20140718
  Transmission Date: 20150326
  Serious: Yes (Disabling, Other)
  Sender: FDA-Public Use
  Company Number: None

PATIENT
  Age: 50 Year
  Sex: Female
  Weight: 58.97 kg

DRUGS (1)
  1. CIPRO [Suspect]
     Active Substance: CIPROFLOXACIN HYDROCHLORIDE
     Indication: URINARY TRACT INFECTION
     Route: 048

REACTIONS (9)
  - Multi-organ disorder [None]
  - Hypersensitivity [None]
  - Liver injury [None]
  - Thyroid disorder [None]
  - General physical health deterioration [None]
  - Skin injury [None]
  - Colon injury [None]
  - Soft tissue injury [None]
  - Eye injury [None]
